FAERS Safety Report 8302904-6 (Version None)
Quarter: 2012Q2

REPORT INFORMATION
  Report Type: 
  Country: None (occurrence: None)
  Receive Date: 20120420
  Receipt Date: 20120416
  Transmission Date: 20120825
  Serious: Yes (Hospitalization, Other)
  Sender: FDA-Public Use
  Company Number: CA-AMGEN-CANSP2012011678

PATIENT
  Age: 76 Year
  Sex: Female

DRUGS (7)
  1. GABAPENTIN [Concomitant]
     Dosage: UNK
     Route: 048
  2. ARAVA [Concomitant]
     Dosage: UNK
  3. HYDROMORPHONE HCL [Concomitant]
     Indication: PAIN
     Dosage: UNK
     Route: 048
  4. HYDROXYCHLOROQUINE SULFATE [Concomitant]
     Indication: RHEUMATOID ARTHRITIS
     Dosage: UNK UNK, BID
     Route: 048
  5. ENBREL [Suspect]
     Indication: RHEUMATOID ARTHRITIS
     Dosage: 50 MG, QWK
     Route: 058
     Dates: start: 20110812
  6. METOFORMIN [Concomitant]
     Dosage: UNK
     Route: 048
  7. FENTANYL HYDROCHLORIDE [Concomitant]
     Indication: PAIN
     Dosage: UNK
     Route: 048

REACTIONS (5)
  - HIP FRACTURE [None]
  - WALKING AID USER [None]
  - WOUND INFECTION [None]
  - POSTOPERATIVE WOUND INFECTION [None]
  - FALL [None]
